FAERS Safety Report 9369566 (Version 1)
Quarter: 2013Q2

REPORT INFORMATION
  Report Type: Spontaneous
  Country: US (occurrence: US)
  Receive Date: 20130626
  Receipt Date: 20130626
  Transmission Date: 20140414
  Serious: No
  Sender: FDA-Public Use
  Company Number: US-PFIZER INC-2013189206

PATIENT
  Age: 48 Year
  Sex: Male
  Weight: 89.8 kg

DRUGS (2)
  1. NEURONTIN [Suspect]
     Indication: PAIN
     Dosage: UNK
     Route: 048
     Dates: start: 2008
  2. INDOCID [Concomitant]
     Dosage: UNK

REACTIONS (3)
  - Nausea [Unknown]
  - Constipation [Unknown]
  - Drug ineffective [Unknown]
